FAERS Safety Report 8041694-1 (Version None)
Quarter: 2012Q1

REPORT INFORMATION
  Report Type: 
  Country: None (occurrence: None)
  Receive Date: 20120112
  Receipt Date: 20120104
  Transmission Date: 20120608
  Serious: Yes (Death, Life-Threatening)
  Sender: FDA-Public Use
  Company Number: US-NAPPMUNDI-USA-2012-0080508

PATIENT
  Age: 52 Year
  Sex: Female

DRUGS (1)
  1. DILAUDID [Suspect]
     Indication: PROCEDURAL PAIN
     Dosage: UNK UNK, SEE TEXT
     Route: 042
     Dates: start: 20111219

REACTIONS (1)
  - CARDIAC ARREST [None]
